FAERS Safety Report 25636625 (Version 2)
Quarter: 2025Q3

REPORT INFORMATION
  Report Type: Spontaneous
  Country: US (occurrence: US)
  Receive Date: 20250804
  Receipt Date: 20250910
  Transmission Date: 20251021
  Serious: No
  Sender: AMGEN
  Company Number: US-AMGEN-USASP2025150838

PATIENT
  Age: 79 Year
  Sex: Female

DRUGS (2)
  1. NPLATE [Suspect]
     Active Substance: ROMIPLOSTIM
     Indication: Immune thrombocytopenia
     Route: 065
  2. NPLATE [Suspect]
     Active Substance: ROMIPLOSTIM
     Route: 065
     Dates: end: 20250729

REACTIONS (1)
  - Therapy non-responder [Unknown]
